FAERS Safety Report 16398317 (Version 1)
Quarter: 2019Q2

REPORT INFORMATION
  Report Type: Spontaneous
  Country: IT (occurrence: IT)
  Receive Date: 20190606
  Receipt Date: 20190606
  Transmission Date: 20190711
  Serious: Yes (Hospitalization, Other)
  Sender: FDA-Public Use
  Company Number: IT-PFIZER INC-2019239928

PATIENT
  Age: 85 Year
  Sex: Female

DRUGS (1)
  1. XANAX [Suspect]
     Active Substance: ALPRAZOLAM
     Indication: DRUG ABUSE
     Dosage: 1 DF, SINGLE
     Route: 048

REACTIONS (3)
  - Intentional overdose [Unknown]
  - Sopor [Unknown]
  - Drug abuse [Unknown]

NARRATIVE: CASE EVENT DATE: 20190329
